FAERS Safety Report 7428744-8 (Version None)
Quarter: 2011Q2

REPORT INFORMATION
  Report Type: 
  Country: None (occurrence: None)
  Receive Date: 20110421
  Receipt Date: 20110412
  Transmission Date: 20111010
  Serious: Yes (Other)
  Sender: FDA-Public Use
  Company Number: DE-PFIZER INC-2011085881

PATIENT
  Sex: Male

DRUGS (1)
  1. PREGABALIN [Suspect]
     Dosage: UNK DF, 1X/DAY

REACTIONS (1)
  - DRUG ABUSE [None]
